FAERS Safety Report 4864967-X (Version None)
Quarter: 2005Q4

REPORT INFORMATION
  Report Type: 
  Country: None (occurrence: None)
  Receive Date: 20051223
  Receipt Date: 20051108
  Transmission Date: 20060501
  Serious: Yes (Other)
  Sender: FDA-Public Use
  Company Number: PHEH2005US12325

PATIENT
  Age: 77 Year
  Sex: Female

DRUGS (1)
  1. MIACALCIN [Suspect]
     Indication: OSTEOPOROSIS
     Dosage: UNK, QD
     Route: 045
     Dates: start: 20041203, end: 20051107

REACTIONS (3)
  - HEPATIC ENZYME INCREASED [None]
  - HEPATITIS C [None]
  - HEPATITIS C RNA POSITIVE [None]
